FAERS Safety Report 7278506-X (Version None)
Quarter: 2011Q1

REPORT INFORMATION
  Report Type: 
  Country: None (occurrence: None)
  Receive Date: 20110202
  Receipt Date: 20110202
  Transmission Date: 20110831
  Serious: Yes (Hospitalization)
  Sender: FDA-Public Use
  Company Number: None

PATIENT
  Age: 52 Year
  Sex: Male
  Weight: 88.4514 kg

DRUGS (2)
  1. CELEBREX [Suspect]
     Indication: SPINAL OSTEOARTHRITIS
     Dosage: 1 CAPSULE EVERY DAY PO   OVER 6 YEARS
     Route: 048
  2. CELEBREX [Suspect]
     Indication: BACK PAIN
     Dosage: 1 CAPSULE EVERY DAY PO   OVER 6 YEARS
     Route: 048

REACTIONS (3)
  - PULMONARY EMBOLISM [None]
  - CHEST PAIN [None]
  - ARTHRALGIA [None]
